FAERS Safety Report 5390383-0 (Version None)
Quarter: 2007Q3

REPORT INFORMATION
  Report Type: 
  Country: None (occurrence: None)
  Receive Date: 20070718
  Receipt Date: 20070708
  Transmission Date: 20080115
  Serious: Yes (Other)
  Sender: FDA-Public Use
  Company Number: US-PFIZER INC-2007056078

PATIENT
  Sex: Female
  Weight: 113.4 kg

DRUGS (4)
  1. RELPAX [Suspect]
     Indication: BENIGN INTRACRANIAL HYPERTENSION
     Route: 048
     Dates: start: 20070706, end: 20070707
  2. ATENOLOL [Concomitant]
     Indication: BLOOD PRESSURE
  3. TOPAMAX [Concomitant]
  4. DIAMOX [Concomitant]

REACTIONS (4)
  - EYE PRURITUS [None]
  - EYE SWELLING [None]
  - LIP SWELLING [None]
  - SKIN DISORDER [None]
